FAERS Safety Report 7232189-3 (Version None)
Quarter: 2011Q1

REPORT INFORMATION
  Report Type: 
  Country: None (occurrence: None)
  Receive Date: 20110119
  Receipt Date: 20110107
  Transmission Date: 20110831
  Serious: No
  Sender: FDA-Public Use
  Company Number: US-BIOGENIDEC-2011BI001158

PATIENT
  Age: 25 Year
  Sex: Female

DRUGS (2)
  1. CHANTIX [Concomitant]
     Indication: SMOKING CESSATION THERAPY
     Dates: start: 20100101
  2. TYSABRI [Suspect]
     Indication: MULTIPLE SCLEROSIS
     Route: 042
     Dates: start: 20100709

REACTIONS (4)
  - MUSCULAR WEAKNESS [None]
  - SENSATION OF HEAVINESS [None]
  - MUSCULOSKELETAL DISORDER [None]
  - SENSORY DISTURBANCE [None]
